FAERS Safety Report 10090218 (Version 2)
Quarter: 2014Q2

REPORT INFORMATION
  Report Type: Spontaneous
  Country: US (occurrence: US)
  Receive Date: 20140421
  Receipt Date: 20140626
  Transmission Date: 20141212
  Serious: Yes (Hospitalization)
  Sender: FDA-Public Use
  Company Number: US-GLAXOSMITHKLINE-A1070153A

PATIENT
  Age: 59 Year
  Sex: Male
  Weight: 59.1 kg

DRUGS (12)
  1. ADVAIR [Suspect]
     Indication: CHRONIC OBSTRUCTIVE PULMONARY DISEASE
     Dosage: 1PUFF TWICE PER DAY
     Route: 055
     Dates: start: 2010
  2. WELLBUTRIN SR [Suspect]
     Indication: PRODUCT USED FOR UNKNOWN INDICATION
     Route: 065
     Dates: start: 20090623
  3. KEPPRA [Suspect]
     Indication: CONVULSION
     Route: 065
  4. HEADACHE MEDICATION [Suspect]
     Indication: HEADACHE
     Route: 065
  5. ALBUTEROL + IPRATROPIUM BROMIDE [Concomitant]
  6. FERROUS SULPHATE [Concomitant]
  7. VITAMIN B 12 [Concomitant]
  8. TOPAMAX [Concomitant]
  9. RESPERIDOL CONSTA [Concomitant]
  10. PROZAC [Concomitant]
  11. ARICEPT [Concomitant]
  12. SIMVASTATIN [Concomitant]

REACTIONS (12)
  - Convulsion [Unknown]
  - Headache [Unknown]
  - Impaired driving ability [Unknown]
  - Encephalopathy [Unknown]
  - Epilepsy [Unknown]
  - Amnesia [Unknown]
  - Confusional state [Unknown]
  - Malaise [Unknown]
  - Abdominal discomfort [Unknown]
  - Nausea [Unknown]
  - Vomiting [Unknown]
  - Disability [Unknown]
